FAERS Safety Report 14304285 (Version 1)
Quarter: 2017Q4

REPORT INFORMATION
  Report Type: Report from Study
  Country: JP (occurrence: JP)
  Receive Date: 20171219
  Receipt Date: 20171219
  Transmission Date: 20180321
  Serious: Yes (Other)
  Sender: FDA-Public Use
  Company Number: JP-OTSUKA-JP-2013-12113

PATIENT
  Age: 71 Year
  Sex: Female
  Weight: 35 kg

DRUGS (26)
  1. ARIPIPRAZOLE. [Suspect]
     Active Substance: ARIPIPRAZOLE
     Dosage: 3 MG, QD
     Route: 048
     Dates: start: 20130109, end: 20130116
  2. LAMICTAL [Concomitant]
     Active Substance: LAMOTRIGINE
     Dosage: 200 MG, QD
     Route: 048
     Dates: start: 20121205
  3. TRIAZOLAM. [Concomitant]
     Active Substance: TRIAZOLAM
     Dosage: TABS
  4. ARIPIPRAZOLE. [Suspect]
     Active Substance: ARIPIPRAZOLE
     Dosage: 9 MG, QD
     Route: 048
     Dates: start: 20130316, end: 20130325
  5. ARIPIPRAZOLE. [Suspect]
     Active Substance: ARIPIPRAZOLE
     Dosage: 12 MG, QD
     Route: 048
     Dates: start: 20121219, end: 20130108
  6. ARIPIPRAZOLE. [Suspect]
     Active Substance: ARIPIPRAZOLE
     Dosage: 6 MG, QD
     Route: 048
     Dates: start: 20130326, end: 20130408
  7. REMERON [Suspect]
     Active Substance: MIRTAZAPINE
     Dosage: 30 MG, QD
     Route: 048
     Dates: start: 20130212, end: 20130310
  8. ARTIST [Concomitant]
     Active Substance: CARVEDILOL
     Indication: HYPERTENSION
     Dosage: 1.25 MG, QD
     Route: 048
  9. MAGMITT [Concomitant]
     Active Substance: MAGNESIUM OXIDE
     Indication: CONSTIPATION
     Dosage: 660 MG, QD
     Route: 048
  10. LAMOTRIGINE. [Concomitant]
     Active Substance: LAMOTRIGINE
     Dosage: UNK
     Dates: start: 20121110
  11. ARIPIPRAZOLE. [Suspect]
     Active Substance: ARIPIPRAZOLE
     Dosage: 6 MG, QD
     Route: 048
     Dates: start: 20130117, end: 20130225
  12. REMERON [Suspect]
     Active Substance: MIRTAZAPINE
     Indication: BIPOLAR DISORDER
     Dosage: 15 MG, QD
     Route: 048
     Dates: start: 20130129, end: 20130211
  13. MIRTAZAPINE. [Suspect]
     Active Substance: MIRTAZAPINE
     Indication: BIPOLAR DISORDER
     Dosage: 12FEB13-10MAR13:30MG  11MAR13-15MAR2013:15MG
     Route: 048
     Dates: start: 20130129
  14. QUAZEPAM. [Concomitant]
     Active Substance: QUAZEPAM
     Indication: BIPOLAR DISORDER
     Dosage: 15 MG, QD
     Route: 048
     Dates: end: 20130520
  15. QUAZEPAM. [Concomitant]
     Active Substance: QUAZEPAM
     Dosage: 22.5 MG, QD
     Route: 048
     Dates: start: 20130521
  16. YODEL [Concomitant]
     Active Substance: SENNA LEAF
     Indication: CONSTIPATION
     Dosage: 240 MG, QD
     Route: 048
  17. SENNA [Concomitant]
     Active Substance: SENNA LEAF\SENNOSIDES\SENNOSIDES A AND B
     Dosage: TABS
  18. ARIPIPRAZOLE. [Suspect]
     Active Substance: ARIPIPRAZOLE
     Indication: BIPOLAR DISORDER
     Dosage: 24 MG, QD
     Route: 048
     Dates: start: 20121115, end: 20121204
  19. ARIPIPRAZOLE. [Suspect]
     Active Substance: ARIPIPRAZOLE
     Dosage: 3 MG, QD
     Route: 048
     Dates: start: 20130226, end: 20130315
  20. HALCION [Concomitant]
     Active Substance: TRIAZOLAM
     Indication: BIPOLAR DISORDER
     Dosage: 0.50 MG MILLIGRAM(S), DAILY DOSE
     Route: 048
  21. ARIPIPRAZOLE. [Suspect]
     Active Substance: ARIPIPRAZOLE
     Dosage: 18 MG, QD
     Route: 048
     Dates: start: 20121205, end: 20121218
  22. REMERON [Suspect]
     Active Substance: MIRTAZAPINE
     Dosage: 15 MG, QD
     Route: 048
     Dates: start: 20130311, end: 20130315
  23. GASMOTIN [Concomitant]
     Active Substance: MOSAPRIDE CITRATE
     Indication: CONSTIPATION
     Dosage: 15 MG, QD
     Route: 048
  24. LAMICTAL [Concomitant]
     Active Substance: LAMOTRIGINE
     Indication: BIPOLAR DISORDER
     Dosage: 125 MG, QD
     Route: 048
     Dates: start: 20121110, end: 20121204
  25. ARIPIPRAZOLE. [Suspect]
     Active Substance: ARIPIPRAZOLE
     Dosage: 3 MG, QD
     Route: 048
     Dates: start: 20130409, end: 20130423
  26. ARIPIPRAZOLE. [Suspect]
     Active Substance: ARIPIPRAZOLE
     Indication: BIPOLAR DISORDER
     Dosage: 5DE12-18DE12:18MG,19DE12-8JA13:12MG,9JA-16JA13:3MG  17JA-25FE13:6MG,26FE-15MAR13:3MG
     Route: 048
     Dates: start: 20121115, end: 20130423

REACTIONS (1)
  - Suicide attempt [Recovered/Resolved]

NARRATIVE: CASE EVENT DATE: 20130309
